FAERS Safety Report 8790819 (Version 1)
Quarter: 2012Q4

REPORT INFORMATION
  Report Type: Spontaneous
  Country: US (occurrence: None)
  Receive Date: 20120912
  Receipt Date: 20120912
  Transmission Date: 20130627
  Serious: Yes (Other)
  Sender: FDA-Public Use
  Company Number: None

PATIENT
  Sex: Female

DRUGS (2)
  1. YAZ [Suspect]
  2. NORGESTREL AND ETHINYL ESTRADIOL [Suspect]

REACTIONS (3)
  - Rash [None]
  - Mood swings [None]
  - Menstrual disorder [None]
